FAERS Safety Report 6034808-6 (Version None)
Quarter: 2009Q1

REPORT INFORMATION
  Report Type: 
  Country: None (occurrence: None)
  Receive Date: 20090112
  Receipt Date: 20081231
  Transmission Date: 20090719
  Serious: Yes (Life-Threatening, Hospitalization, Disabling)
  Sender: FDA-Public Use
  Company Number: TR-WYE-H07526309

PATIENT
  Sex: Female

DRUGS (7)
  1. PANTPAS [Suspect]
     Indication: GASTROINTESTINAL HAEMORRHAGE
     Dosage: INTRAVENOUS BOLUS
     Route: 042
  2. LASIX [Suspect]
     Dosage: UNSPECIFIED
     Route: 042
     Dates: start: 20081022
  3. DIOVAN [Concomitant]
     Indication: CARDIAC FAILURE
     Dosage: UNKNOWN
     Route: 048
  4. PLAVIX [Concomitant]
     Indication: MYOCARDIAL INFARCTION
     Dosage: UNKNOWN
     Route: 048
  5. ATORVASTATIN CALCIUM [Concomitant]
     Indication: MYOCARDIAL INFARCTION
     Dosage: UNKNOWN
     Route: 048
  6. PANTOPRAZOLE SODIUM [Suspect]
     Indication: GASTROINTESTINAL HAEMORRHAGE
     Route: 048
  7. CORASPIN [Suspect]
     Dosage: UNKNOWN

REACTIONS (1)
  - EMBOLISM VENOUS [None]
